FAERS Safety Report 8396630-5 (Version None)
Quarter: 2012Q2

REPORT INFORMATION
  Report Type: 
  Country: None (occurrence: None)
  Receive Date: 20120530
  Receipt Date: 20120525
  Transmission Date: 20120825
  Serious: No
  Sender: FDA-Public Use
  Company Number: US-PFIZER INC-2012127250

PATIENT
  Sex: Female
  Weight: 97.506 kg

DRUGS (6)
  1. XALATAN [Suspect]
     Indication: GLAUCOMA
     Dosage: UNK, 1X/DAY
     Route: 047
     Dates: end: 20120301
  2. TRIAMTERENE AND HYDROCHLOROTHIAZIDE [Concomitant]
     Dosage: UNK
  3. METFORMIN [Concomitant]
     Dosage: UNK
  4. LATANOPROST [Suspect]
     Dosage: UNK, 1X/DAY
     Route: 047
     Dates: start: 20120401
  5. LATANOPROST [Suspect]
     Indication: GLAUCOMA
     Dosage: UNK, 1X/DAY
     Route: 047
     Dates: start: 20120301, end: 20120401
  6. IRBESARTAN [Concomitant]
     Indication: HYPERTENSION
     Dosage: UNK

REACTIONS (7)
  - BLOOD CHOLESTEROL INCREASED [None]
  - EYE SWELLING [None]
  - BLEPHAROSPASM [None]
  - MUSCULAR WEAKNESS [None]
  - ARTHRITIS [None]
  - ALOPECIA [None]
  - HEADACHE [None]
